FAERS Safety Report 25155260 (Version 1)
Quarter: 2025Q2

REPORT INFORMATION
  Report Type: Spontaneous
  Country: US (occurrence: None)
  Receive Date: 20250402
  Receipt Date: 20250402
  Transmission Date: 20250716
  Serious: Yes (Hospitalization)
  Sender: FDA-CTU
  Company Number: None

PATIENT
  Sex: Female

DRUGS (1)
  1. NYVEPRIA [Suspect]
     Active Substance: PEGFILGRASTIM-APGF
     Indication: Cholangiocarcinoma
     Route: 058
     Dates: start: 20240603

REACTIONS (3)
  - Hospitalisation [None]
  - Influenza [None]
  - Dehydration [None]
